FAERS Safety Report 4428713-6 (Version None)
Quarter: 2004Q3

REPORT INFORMATION
  Report Type: 
  Country: None (occurrence: None)
  Receive Date: 20040818
  Receipt Date: 20040115
  Transmission Date: 20050211
  Serious: No
  Sender: FDA-Public Use
  Company Number: US-BRISTOL-MYERS SQUIBB COMPANY-12480059

PATIENT
  Age: 68 Year
  Sex: Female
  Weight: 57 kg

DRUGS (3)
  1. TEQUIN [Suspect]
     Indication: LUNG INFECTION
     Dosage: SAMPLES GIVEN BY THE PHYSICIAN
     Route: 048
     Dates: end: 20040110
  2. TEQUIN [Suspect]
     Indication: PULMONARY CONGESTION
     Dosage: SAMPLES GIVEN BY THE PHYSICIAN
     Route: 048
     Dates: end: 20040110
  3. BENADRYL [Concomitant]

REACTIONS (1)
  - HEPATOMEGALY [None]
